FAERS Safety Report 17550139 (Version 1)
Quarter: 2020Q1

REPORT INFORMATION
  Report Type: Spontaneous
  Country: US (occurrence: US)
  Receive Date: 20200312
  Receipt Date: 20200312
  Transmission Date: 20200409
  Serious: No
  Sender: FDA-Public Use
  Company Number: None

PATIENT
  Age: 56 Year
  Sex: Male

DRUGS (1)
  1. AUBAGIO [Suspect]
     Active Substance: TERIFLUNOMIDE
     Route: 048
     Dates: start: 20200212, end: 20200312

REACTIONS (3)
  - Hypoaesthesia [None]
  - Gastric disorder [None]
  - Paraesthesia [None]

NARRATIVE: CASE EVENT DATE: 20200312
